FAERS Safety Report 21239010 (Version 3)
Quarter: 2022Q3

REPORT INFORMATION
  Report Type: Spontaneous
  Country: TR (occurrence: TR)
  Receive Date: 20220822
  Receipt Date: 20220822
  Transmission Date: 20221027
  Serious: Yes (Hospitalization)
  Sender: FDA-Public Use
  Company Number: TR-PFIZER INC-PV202200039548

PATIENT
  Age: 69 Year
  Sex: Female

DRUGS (4)
  1. AMLODIPINE BESYLATE [Suspect]
     Active Substance: AMLODIPINE BESYLATE
     Indication: Hypertension
     Dosage: 10 MG
  2. INSULIN GLARGINE [Suspect]
     Active Substance: INSULIN GLARGINE
     Indication: Hypertension
     Dosage: UNK UNK, 1X/DAY (10 UNITS)
  3. INSULIN NOS [Suspect]
     Active Substance: INSULIN NOS
     Indication: Hypertension
     Dosage: UNK UNK, 2X/DAY (18-20 UNITS)
  4. HYDROCHLOROTHIAZIDE\LOSARTAN [Suspect]
     Active Substance: HYDROCHLOROTHIAZIDE\LOSARTAN
     Indication: Hypertension
     Dosage: UNK (100/25 MG)

REACTIONS (2)
  - Hyperintensity in brain deep nuclei [Recovered/Resolved]
  - Dyskinesia [Recovered/Resolved]
